FAERS Safety Report 9959160 (Version 1)
Quarter: 2014Q1

REPORT INFORMATION
  Report Type: Spontaneous
  Country: US (occurrence: None)
  Receive Date: 20140228
  Receipt Date: 20140228
  Transmission Date: 20141002
  Serious: No
  Sender: FDA-Public Use
  Company Number: None

PATIENT
  Age: 29 Year
  Sex: Female
  Weight: 113.4 kg

DRUGS (1)
  1. LANTUS SOLOSTAR [Suspect]
     Indication: DIABETES MELLITUS
     Dosage: 60 UNITS TWICE DAILY?TWICE DAILY?INJECTED INTO STOMACH/ARM
     Dates: start: 2010

REACTIONS (2)
  - Device malfunction [None]
  - Device leakage [None]
